FAERS Safety Report 13672540 (Version 2)
Quarter: 2017Q3

REPORT INFORMATION
  Report Type: Spontaneous
  Country: FR (occurrence: FR)
  Receive Date: 20170621
  Receipt Date: 20170811
  Transmission Date: 20171127
  Serious: Yes (Other)
  Sender: FDA-Public Use
  Company Number: FR-BAYER-2017-116404

PATIENT
  Age: 43 Year
  Sex: Female

DRUGS (1)
  1. MIRENA [Suspect]
     Active Substance: LEVONORGESTREL
     Indication: CONTRACEPTION
     Dosage: 20 MCG/24HR, CONT
     Route: 015
     Dates: start: 20120426, end: 20170428

REACTIONS (11)
  - Chest pain [Recovered/Resolved]
  - Urticaria [Unknown]
  - Anxiety [Recovered/Resolved]
  - Tachycardia [Not Recovered/Not Resolved]
  - Anxiety [Not Recovered/Not Resolved]
  - Extrasystoles [Not Recovered/Not Resolved]
  - Weight increased [Recovered/Resolved]
  - Visual impairment [Recovered/Resolved]
  - Loss of libido [Unknown]
  - Depressed mood [Not Recovered/Not Resolved]
  - Headache [Recovered/Resolved]

NARRATIVE: CASE EVENT DATE: 2012
